FAERS Safety Report 6692380-1 (Version None)
Quarter: 2010Q2

REPORT INFORMATION
  Report Type: 
  Country: None (occurrence: None)
  Receive Date: 20100412
  Receipt Date: 20100406
  Transmission Date: 20101027
  Serious: Yes (Life-Threatening, Other)
  Sender: FDA-Public Use
  Company Number: GB-IGSA-IG660

PATIENT
  Age: 83 Year
  Sex: Male

DRUGS (8)
  1. FLEBOGAMMA 5% DIF [Suspect]
     Indication: INFECTION PROPHYLAXIS
     Dosage: 20 GM IV
     Route: 042
     Dates: start: 20100311
  2. ACTIQ (200 UG) [Concomitant]
  3. OXYCONTIN [Concomitant]
  4. LYRICA [Concomitant]
  5. BISOPROLOL AND CARDICOR [Concomitant]
  6. GLICLAZIDE [Concomitant]
  7. PANTOPRAZOLE [Concomitant]
  8. THALIDOMIDE [Concomitant]

REACTIONS (9)
  - BACK PAIN [None]
  - CHILLS [None]
  - COLD SWEAT [None]
  - CONFUSIONAL STATE [None]
  - DYSPNOEA [None]
  - FEELING COLD [None]
  - HYPERTENSION [None]
  - MALAISE [None]
  - OXYGEN SATURATION DECREASED [None]
